FAERS Safety Report 4383668-8 (Version None)
Quarter: 2004Q2

REPORT INFORMATION
  Report Type: 
  Country: None (occurrence: None)
  Receive Date: 20040623
  Receipt Date: 20040610
  Transmission Date: 20050107
  Serious: Yes (Hospitalization)
  Sender: FDA-Public Use
  Company Number: 361421

PATIENT
  Age: 75 Year
  Sex: Male

DRUGS (8)
  1. ARTIST [Suspect]
     Indication: HYPERTENSION
     Dosage: 5MG PER DAY
     Route: 048
     Dates: start: 20020509, end: 20020509
  2. GLYCERYL NITRATE [Suspect]
     Indication: HYPERTENSION
     Dosage: 1.7MCK UNKNOWN
     Route: 042
     Dates: start: 20020504, end: 20020509
  3. DOXAZOSIN MESYLATE [Suspect]
     Indication: HYPERTENSION
     Dosage: 2MG PER DAY
     Route: 048
     Dates: start: 20020508, end: 20020509
  4. NICARDIPINE HCL [Suspect]
     Indication: HYPERTENSION
     Dosage: 1.7MCK SEE DOSAGE TEXT
     Route: 042
     Dates: start: 20020507, end: 20020509
  5. NIFEDIPINE [Suspect]
     Indication: HYPERTENSION
     Dosage: 20MG PER DAY
     Route: 048
     Dates: start: 20020509, end: 20020509
  6. FUROSEMIDE [Concomitant]
     Route: 065
     Dates: start: 20020515
  7. HEPARIN [Concomitant]
     Route: 065
     Dates: start: 20020515
  8. ANTIBACTERIALS (UNSPECIFIED) [Concomitant]
     Route: 065
     Dates: start: 20020303

REACTIONS (5)
  - DEPRESSED LEVEL OF CONSCIOUSNESS [None]
  - HEMIPARESIS [None]
  - ISCHAEMIC CEREBRAL INFARCTION [None]
  - LACUNAR INFARCTION [None]
  - SOMNOLENCE [None]
